FAERS Safety Report 20728636 (Version 1)
Quarter: 2022Q2

REPORT INFORMATION
  Report Type: Spontaneous
  Country: CA (occurrence: CA)
  Receive Date: 20220420
  Receipt Date: 20220420
  Transmission Date: 20220721
  Serious: Yes (Other)
  Sender: FDA-Public Use
  Company Number: CA-TEVA-2022-CA-2027059

PATIENT
  Age: 64 Year
  Sex: Female

DRUGS (10)
  1. OXALIPLATIN [Suspect]
     Active Substance: OXALIPLATIN
     Indication: Pancreatic carcinoma
     Route: 042
  2. DEXAMETHASONE [Concomitant]
     Active Substance: DEXAMETHASONE
     Route: 065
  3. FLUOROURACIL [Concomitant]
     Active Substance: FLUOROURACIL
  4. GRANISETRON [Concomitant]
     Active Substance: GRANISETRON
  5. HYDROMORPHONE [Concomitant]
     Active Substance: HYDROMORPHONE
  6. HYDROMORPHONE [Concomitant]
     Active Substance: HYDROMORPHONE
  7. LEUCOVORIN [Concomitant]
     Active Substance: LEUCOVORIN
  8. LOPERAMIDE [Concomitant]
     Active Substance: LOPERAMIDE
  9. LORAZEPAM [Concomitant]
     Active Substance: LORAZEPAM
     Route: 065
  10. PANTOPRAZOLE [Concomitant]
     Active Substance: PANTOPRAZOLE

REACTIONS (1)
  - Hypoaesthesia oral [Recovered/Resolved]
